FAERS Safety Report 12930466 (Version 1)
Quarter: 2016Q4

REPORT INFORMATION
  Report Type: Spontaneous
  Country: US (occurrence: US)
  Receive Date: 20161111
  Receipt Date: 20161111
  Transmission Date: 20170207
  Serious: No
  Sender: FDA-Public Use
  Company Number: None

PATIENT

DRUGS (1)
  1. POTASSIUM CHLORIDE POWDER FOR ORAL SOLUTION MAYNE PHARMA (USA), INC [Suspect]
     Active Substance: POTASSIUM CHLORIDE
     Dosage: POWDER FOR RECONSTITUTION??
     Route: 048

REACTIONS (1)
  - Product barcode issue [None]
